FAERS Safety Report 8070979-8 (Version None)
Quarter: 2011Q4

REPORT INFORMATION
  Report Type: 
  Country: None (occurrence: None)
  Receive Date: 20111221
  Receipt Date: 20110920
  Transmission Date: 20120403
  Serious: Yes (Hospitalization)
  Sender: FDA-Public Use
  Company Number: PHEH2011US04684

PATIENT
  Age: 14 Year
  Sex: Female
  Weight: 38 kg

DRUGS (7)
  1. EXJADE [Suspect]
     Indication: HAEMOSIDEROSIS
     Dosage: 1000 MG, QD, ORAL
     Route: 048
     Dates: start: 20080101
  2. EXJADE [Suspect]
     Indication: SICKLE CELL ANAEMIA
     Dosage: 1000 MG, QD, ORAL
     Route: 048
     Dates: start: 20080101
  3. FOLIC ACID [Concomitant]
  4. PENICILLIN [Concomitant]
  5. COMBIVIR [Concomitant]
  6. SUSTIVA [Concomitant]
  7. DIDANOSINE (DIDANOSINE, DIDEOXYNOSINE) [Concomitant]

REACTIONS (1)
  - HEADACHE [None]
